FAERS Safety Report 13546641 (Version 1)
Quarter: 2017Q2

REPORT INFORMATION
  Report Type: Report from Study
  Country: FR (occurrence: FR)
  Receive Date: 20170515
  Receipt Date: 20170515
  Transmission Date: 20170830
  Serious: Yes (Other)
  Sender: FDA-Public Use
  Company Number: FR-JNJFOC-20170510956

PATIENT

DRUGS (1)
  1. INFLIXIMAB, RECOMBINANT [Suspect]
     Active Substance: INFLIXIMAB
     Indication: NEUROSARCOIDOSIS
     Route: 042

REACTIONS (5)
  - Atypical mycobacterial infection [Unknown]
  - Cellulitis [Unknown]
  - Product use in unapproved indication [Unknown]
  - Off label use [Unknown]
  - Pseudomonas infection [Unknown]
